FAERS Safety Report 4861265-5 (Version None)
Quarter: 2005Q4

REPORT INFORMATION
  Report Type: 
  Country: None (occurrence: None)
  Receive Date: 20051220
  Receipt Date: 20051005
  Transmission Date: 20060501
  Serious: Yes (Death, Hospitalization)
  Sender: FDA-Public Use
  Company Number: US-MERCK-0510USA03426

PATIENT
  Age: 72 Year
  Sex: Female
  Weight: 48 kg

DRUGS (7)
  1. VIOXX [Suspect]
     Indication: ARTHRITIS
     Route: 048
     Dates: start: 20020101
  2. PROVERA [Concomitant]
     Route: 065
  3. ESTRACE [Concomitant]
     Route: 065
  4. MIACALCIN [Concomitant]
     Route: 065
  5. VAGIFEM [Concomitant]
     Route: 065
  6. LEVOTHROID [Concomitant]
     Route: 065
  7. ZOLOFT [Concomitant]
     Route: 065

REACTIONS (5)
  - ARRHYTHMIA [None]
  - CARDIAC ARREST [None]
  - CARDIOVASCULAR DISORDER [None]
  - SUDDEN CARDIAC DEATH [None]
  - UTERINE POLYP [None]
